FAERS Safety Report 9948689 (Version 1)
Quarter: 2014Q1

REPORT INFORMATION
  Report Type: Spontaneous
  Country: US (occurrence: None)
  Receive Date: 20140122
  Receipt Date: 20140122
  Transmission Date: 20141002
  Serious: Yes (Other)
  Sender: FDA-Public Use
  Company Number: AEGR000235

PATIENT
  Age: 69 Year
  Sex: Male
  Weight: 110.7 kg

DRUGS (3)
  1. JUXTAPID (LOMITAPIDE) CAPSULE, 5MG [Suspect]
     Indication: TYPE IIA HYPERLIPIDAEMIA
     Route: 048
     Dates: start: 20131129, end: 20131210
  2. ZETIA (EZETIMIBE) [Concomitant]
  3. CRESTOR (ROSUVASTATIN CALCIUM) [Concomitant]

REACTIONS (5)
  - Abdominal pain upper [None]
  - Dyspepsia [None]
  - Abdominal discomfort [None]
  - Diarrhoea [None]
  - Myalgia [None]
